FAERS Safety Report 21134788 (Version 1)
Quarter: 2022Q3

REPORT INFORMATION
  Report Type: Spontaneous
  Country: FR (occurrence: FR)
  Receive Date: 20220727
  Receipt Date: 20220727
  Transmission Date: 20221027
  Serious: Yes (Other)
  Sender: FDA-Public Use
  Company Number: None

PATIENT
  Age: 63 Year
  Sex: Female

DRUGS (6)
  1. TRAMADOL HYDROCHLORIDE [Suspect]
     Active Substance: TRAMADOL HYDROCHLORIDE
     Indication: Pain
     Dosage: UNKNOWN, TRAMADOL (CHLORHYDRATE DE), DURATION : 1 DAY
     Dates: start: 20220530, end: 20220531
  2. OMEPRAZOLE [Suspect]
     Active Substance: OMEPRAZOLE
     Indication: Prophylaxis against gastrointestinal ulcer
     Dosage: UNIT DOSE: 20 MG, FREQUENCY TIME : 1 DAY, DURATION :1 DAY
     Dates: start: 20220530, end: 20220531
  3. KETOPROFEN [Suspect]
     Active Substance: KETOPROFEN
     Indication: Pain
     Dosage: UNIT DOSE: 200 MG ,FREQUENCY TIME : 1DAY, DURATION : 1 DAY
     Route: 065
     Dates: start: 20220530, end: 20220531
  4. ACETAMINOPHEN [Suspect]
     Active Substance: ACETAMINOPHEN
     Indication: Pain
     Dosage: UNIT DOSE: 3 GM, FREQUENCY TIME : 1 DAY, DURATION : 1DAY
     Route: 065
     Dates: start: 20220530, end: 20220531
  5. NEFOPAM HYDROCHLORIDE [Suspect]
     Active Substance: NEFOPAM HYDROCHLORIDE
     Indication: Pain
     Dosage: NEFOPAM (CHLORHYDRATE DE), UNIT DOSE: 60 MG , FREQUENCY TIME : 1 DAY, DURATION : 1 DAY
     Dates: start: 20220530, end: 20220531
  6. ARAVA [Concomitant]
     Active Substance: LEFLUNOMIDE
     Indication: Rheumatoid arthritis
     Dosage: UNIT DOSE: 20 MG, FREQUENCY TIME : 1 DAY
     Dates: start: 202203

REACTIONS (2)
  - Cholestasis [Recovering/Resolving]
  - Hepatic cytolysis [Recovered/Resolved]

NARRATIVE: CASE EVENT DATE: 20220607
